FAERS Safety Report 24031192 (Version 2)
Quarter: 2024Q3

REPORT INFORMATION
  Report Type: Spontaneous
  Country: JP (occurrence: JP)
  Receive Date: 20240629
  Receipt Date: 20240803
  Transmission Date: 20241017
  Serious: Yes (Other)
  Sender: ABBVIE
  Company Number: JP-ABBVIE-5817197

PATIENT
  Age: 70 Year
  Sex: Male

DRUGS (1)
  1. RINVOQ [Suspect]
     Active Substance: UPADACITINIB
     Indication: Rheumatoid arthritis
     Dosage: FORM STRENGTH: 15 MILLIGRAMS
     Route: 048

REACTIONS (3)
  - Urinary retention [Unknown]
  - Investigation abnormal [Unknown]
  - Herpes zoster [Unknown]
